FAERS Safety Report 6518227-1 (Version None)
Quarter: 2009Q4

REPORT INFORMATION
  Report Type: 
  Country: None (occurrence: None)
  Receive Date: 20091218
  Receipt Date: 20091204
  Transmission Date: 20100525
  Serious: Yes (Hospitalization, Disabling, Other)
  Sender: FDA-Public Use
  Company Number: DSJ-2009-15422

PATIENT
  Age: 73 Year
  Sex: Female
  Weight: 52.2 kg

DRUGS (11)
  1. OLMESARTAN MEDOXOMIL [Suspect]
     Indication: HYPERTENSION
     Dosage: 20 MG (20 MG,1 IN 1 D),PER ORAL ; 40 MG (20 MG,2 IN 1 D),PER ORAL
     Route: 048
     Dates: start: 20090123, end: 20090208
  2. OLMESARTAN MEDOXOMIL [Suspect]
     Indication: HYPERTENSION
     Dosage: 20 MG (20 MG,1 IN 1 D),PER ORAL ; 40 MG (20 MG,2 IN 1 D),PER ORAL
     Route: 048
     Dates: start: 20090209, end: 20090302
  3. ALLOPURINOL [Suspect]
     Indication: HYPERURICAEMIA
     Dosage: 100 MG (200 MG,1 IN 1 D),PER ORAL
     Route: 048
     Dates: start: 20090126, end: 20090302
  4. EPOGEN [Suspect]
     Indication: NEPHROGENIC ANAEMIA
     Dosage: 12000 IU (12000 IU,1 IN 1 D),SUBCUTANEOUS ; 6000 IU (6000 IU,1 IN 1 D),SUBCUTANEOUS
     Route: 058
     Dates: start: 20090209, end: 20090302
  5. EPOGEN [Suspect]
     Indication: NEPHROGENIC ANAEMIA
     Dosage: 12000 IU (12000 IU,1 IN 1 D),SUBCUTANEOUS ; 6000 IU (6000 IU,1 IN 1 D),SUBCUTANEOUS
     Route: 058
     Dates: start: 20090331, end: 20090331
  6. ADALAT CC [Concomitant]
  7. ACETYLSALICYLIC ACID SRT [Concomitant]
  8. LASIX (FUROSEMIDE) (TABLET) (FUROSEMIDE) [Concomitant]
  9. PROTECADIN (LAFUTIDINE) (TABLET) (LAFUTIDINE) [Concomitant]
  10. CRESTOR (ROSUVASTATIN CALCIUM) (TABLET) (ROSUVASTATIN CALCIUM) [Concomitant]
  11. DIOVAN [Concomitant]

REACTIONS (6)
  - LOW DENSITY LIPOPROTEIN INCREASED [None]
  - NEPHROGENIC ANAEMIA [None]
  - PLATELET COUNT DECREASED [None]
  - PRURITUS GENERALISED [None]
  - RASH [None]
  - TOXIC EPIDERMAL NECROLYSIS [None]
